FAERS Safety Report 20038713 (Version 2)
Quarter: 2023Q2

REPORT INFORMATION
  Report Type: Spontaneous
  Country: GB (occurrence: GB)
  Receive Date: 20211105
  Receipt Date: 20230615
  Transmission Date: 20230722
  Serious: Yes (Other)
  Sender: FDA-Public Use
  Company Number: None

PATIENT
  Age: 52 Year
  Sex: Female
  Weight: 51.71 kg

DRUGS (1)
  1. TOPAMAX [Suspect]
     Active Substance: TOPIRAMATE
     Indication: Migraine
     Dosage: UP TO 250MG. DOSAGE HAD BEEN INCREASED INCREMENTALLY.
     Route: 048
     Dates: start: 20181201, end: 20190606

REACTIONS (3)
  - Asthma [Recovered/Resolved with Sequelae]
  - Dyspnoea [Recovered/Resolved with Sequelae]
  - Chest pain [Recovered/Resolved with Sequelae]

NARRATIVE: CASE EVENT DATE: 20181201
